FAERS Safety Report 26196595 (Version 2)
Quarter: 2025Q4

REPORT INFORMATION
  Report Type: Spontaneous
  Country: US (occurrence: US)
  Receive Date: 20251224
  Receipt Date: 20251230
  Transmission Date: 20260117
  Serious: No
  Sender: TOLMAR
  Company Number: US-Tolmar-TLM-2025-09514

PATIENT

DRUGS (3)
  1. ELIGARD [Suspect]
     Active Substance: LEUPROLIDE ACETATE
     Indication: Prostate cancer
     Dosage: DOSE NOT ADMINISTERED?EXPIRATION DATE: DEC-2026; DEC-2026; 31-DEC-2026?SN#: 3496496640190?GTIN: 0036
     Dates: start: 20251212
  2. ELIGARD [Suspect]
     Active Substance: LEUPROLIDE ACETATE
     Dosage: REPLACEMENT DOSE GIVEN
  3. DEVICE [Suspect]
     Active Substance: DEVICE
     Indication: Prostate cancer
     Dosage: DOSE NOT ADMINISTERED?EXPIRATION DATE: DEC-2026; DEC-2026; 31-DEC-2026?SN#: 3496496640190?GTIN: 0036

REACTIONS (3)
  - Intercepted product preparation error [Unknown]
  - Device breakage [Unknown]
  - Device leakage [Unknown]

NARRATIVE: CASE EVENT DATE: 20251212
